FAERS Safety Report 5380165-8 (Version None)
Quarter: 2007Q3

REPORT INFORMATION
  Report Type: 
  Country: None (occurrence: None)
  Receive Date: 20070706
  Receipt Date: 20070507
  Transmission Date: 20080115
  Serious: No
  Sender: FDA-Public Use
  Company Number: A0650262A

PATIENT
  Age: 46 Year
  Sex: Female

DRUGS (6)
  1. TYKERB [Suspect]
     Indication: BREAST CANCER
     Dosage: 5TAB PER DAY
     Route: 048
     Dates: start: 20070423
  2. XELODA [Concomitant]
  3. CARBOPLATIN [Concomitant]
  4. MORPHINE [Concomitant]
  5. COMPAZINE [Concomitant]
  6. STOOL SOFTENERS [Concomitant]

REACTIONS (4)
  - ABDOMINAL PAIN UPPER [None]
  - DRY SKIN [None]
  - PARAESTHESIA [None]
  - VOMITING [None]
